FAERS Safety Report 4366015-7 (Version None)
Quarter: 2004Q2

REPORT INFORMATION
  Report Type: 
  Country: None (occurrence: None)
  Receive Date: 20040526
  Receipt Date: 20040526
  Transmission Date: 20050107
  Serious: No
  Sender: FDA-Public Use
  Company Number: None

PATIENT
  Sex: Female
  Weight: 74.8435 kg

DRUGS (3)
  1. PAXIL [Suspect]
     Indication: ANXIETY
     Dosage: 20MG DAILY ORAL
     Route: 048
     Dates: start: 20020610, end: 20040212
  2. PAXIL [Suspect]
     Indication: POSTPARTUM DEPRESSION
     Dosage: 20MG DAILY ORAL
     Route: 048
     Dates: start: 20020610, end: 20040212
  3. PAROXETINE APOTEX CORP [Suspect]
     Indication: DEPRESSION
     Dosage: 20MG DAILY ORAL
     Route: 048
     Dates: start: 20040212, end: 20040516

REACTIONS (15)
  - ABNORMAL DREAMS [None]
  - AGGRESSION [None]
  - DISTURBANCE IN ATTENTION [None]
  - DRUG WITHDRAWAL SYNDROME [None]
  - EMOTIONAL DISORDER [None]
  - FLAT AFFECT [None]
  - HYPERHIDROSIS [None]
  - INDIFFERENCE [None]
  - IRRITABILITY [None]
  - LETHARGY [None]
  - MYALGIA [None]
  - NERVOUS SYSTEM DISORDER [None]
  - PARAESTHESIA [None]
  - SUICIDAL IDEATION [None]
  - WEIGHT INCREASED [None]
